FAERS Safety Report 10120697 (Version 1)
Quarter: 2014Q2

REPORT INFORMATION
  Report Type: Spontaneous
  Country: GB (occurrence: GB)
  Receive Date: 20140425
  Receipt Date: 20140425
  Transmission Date: 20141212
  Serious: Yes (Death, Other)
  Sender: FDA-Public Use
  Company Number: GB-TEVA-477141ISR

PATIENT
  Age: 60 Year
  Sex: Female

DRUGS (2)
  1. OXALIPLATIN [Suspect]
     Indication: COLON CANCER STAGE III
     Route: 042
     Dates: start: 20130923, end: 20131202
  2. 5 FLUOROURACIL [Concomitant]
     Indication: COLON CANCER STAGE III
     Route: 042
     Dates: start: 20130923, end: 20131202

REACTIONS (2)
  - Bulbar palsy [Fatal]
  - Guillain-Barre syndrome [Not Recovered/Not Resolved]
